FAERS Safety Report 15444710 (Version 1)
Quarter: 2018Q3

REPORT INFORMATION
  Report Type: Report from Study
  Country: US (occurrence: US)
  Receive Date: 20180928
  Receipt Date: 20180928
  Transmission Date: 20181010
  Serious: Yes (Hospitalization)
  Sender: FDA-Public Use
  Company Number: US-EISAI MEDICAL RESEARCH-EC-2018-045541

PATIENT
  Age: 55 Year
  Sex: Female
  Weight: 63.5 kg

DRUGS (18)
  1. ERIBULIN [Suspect]
     Active Substance: ERIBULIN
     Indication: BREAST CANCER METASTATIC
     Route: 041
     Dates: start: 20180207, end: 20180822
  2. TOPAMAX [Concomitant]
     Active Substance: TOPIRAMATE
  3. FIORICET [Concomitant]
     Active Substance: ACETAMINOPHEN\BUTALBITAL\CAFFEINE
  4. SINGULAIR [Concomitant]
     Active Substance: MONTELUKAST SODIUM
  5. PROAIR HFA [Concomitant]
     Active Substance: ALBUTEROL SULFATE
  6. NEURONTIN [Concomitant]
     Active Substance: GABAPENTIN
  7. PEMBROLIZUMAB. [Suspect]
     Active Substance: PEMBROLIZUMAB
     Indication: BREAST CANCER METASTATIC
     Route: 041
     Dates: start: 20180829
  8. AMLODIPINE [Concomitant]
     Active Substance: AMLODIPINE BESYLATE
  9. OXYCODONE [Concomitant]
     Active Substance: OXYCODONE
  10. AROMASIN [Concomitant]
     Active Substance: EXEMESTANE
  11. COMPAZINE [Concomitant]
     Active Substance: PROCHLORPERAZINE MALEATE
  12. COLACE [Concomitant]
     Active Substance: DOCUSATE SODIUM
  13. FAMVIR [Concomitant]
     Active Substance: FAMCICLOVIR
  14. ADVIL [Concomitant]
     Active Substance: IBUPROFEN
  15. ATIVAN [Concomitant]
     Active Substance: LORAZEPAM
  16. TOPROL XL [Concomitant]
     Active Substance: METOPROLOL SUCCINATE
  17. ASTEPRO [Concomitant]
     Active Substance: AZELASTINE HYDROCHLORIDE
  18. DECADRON [Concomitant]
     Active Substance: DEXAMETHASONE

REACTIONS (3)
  - Pyrexia [Not Recovered/Not Resolved]
  - Abdominal pain upper [Not Recovered/Not Resolved]
  - Dyspnoea [Not Recovered/Not Resolved]

NARRATIVE: CASE EVENT DATE: 20180924
